FAERS Safety Report 25620948 (Version 1)
Quarter: 2025Q3

REPORT INFORMATION
  Report Type: Spontaneous
  Country: US (occurrence: US)
  Receive Date: 20250730
  Receipt Date: 20250730
  Transmission Date: 20251020
  Serious: No
  Sender: AMNEAL
  Company Number: US-AMNEAL-2024-AMRX-03943

PATIENT
  Sex: Male
  Weight: 74.376 kg

DRUGS (1)
  1. BACLOFEN [Suspect]
     Active Substance: BACLOFEN
     Indication: Product used for unknown indication
     Dosage: 100 MCG/DAY
     Route: 037

REACTIONS (1)
  - Implant site warmth [Recovered/Resolved]
